FAERS Safety Report 21543650 (Version 1)
Quarter: 2022Q4

REPORT INFORMATION
  Report Type: Spontaneous
  Country: DE (occurrence: DE)
  Receive Date: 20221102
  Receipt Date: 20221102
  Transmission Date: 20230113
  Serious: Yes (Hospitalization)
  Sender: FDA-Public Use
  Company Number: DE-ADRED-05739-01

PATIENT
  Age: 67 Year
  Sex: Male
  Weight: 80 kg

DRUGS (15)
  1. PEMETREXED [Suspect]
     Active Substance: PEMETREXED
     Indication: Product used for unknown indication
     Dosage: 75,ACCORDING TO SCHEME
     Route: 065
  2. CISPLATIN [Suspect]
     Active Substance: CISPLATIN
     Indication: Product used for unknown indication
     Dosage: 75, ACCORDING TO SCHEME
     Route: 065
  3. ZOLEDRONIC ACID [Suspect]
     Active Substance: ZOLEDRONIC ACID
     Indication: Product used for unknown indication
     Dosage: ACCORDING TO SCHEME
     Route: 065
  4. DEXAMETHASONE [Concomitant]
     Active Substance: DEXAMETHASONE
     Dosage: 4 MG, 1-0-1-0, TABLET
     Route: 048
  5. GLYCOPYRRONIUM\INDACATEROL [Concomitant]
     Active Substance: GLYCOPYRRONIUM\INDACATEROL
     Dosage: 62.55|110 ?G, 1-0-0-0, HARD CAPSULE WITH POWDER FOR INHALATION
  6. METAMIZOL [Concomitant]
     Active Substance: METAMIZOLE SODIUM
     Dosage: 750 MG, DEMAND, DROPS
     Route: 048
  7. CALCIUM CARBONATE\CALCIUM GLUCONATE [Concomitant]
     Active Substance: CALCIUM CARBONATE\CALCIUM GLUCONATE
     Dosage: 300|2945.15 MG, 0-1-0-0, EFFERVESCENT TABLETS
     Route: 048
  8. PANTOPRAZOLE SODIUM [Concomitant]
     Active Substance: PANTOPRAZOLE SODIUM
     Dosage: 40 MG, 1-0-1-0, RETARD-TABLET
     Route: 048
  9. TAMSULOSIN [Concomitant]
     Active Substance: TAMSULOSIN
     Dosage: 0.4 MG, 1-0-0-0, RETARD-CAPSULE
     Route: 048
  10. ENOXAPARIN [Concomitant]
     Active Substance: ENOXAPARIN
     Dosage: 80 MG, 1-0-1-0, PRE-FILLED SYRINGES
     Route: 058
  11. METOCLOPRAMIDE [Concomitant]
     Active Substance: METOCLOPRAMIDE
     Dosage: 10 MG, 1-1-1-0, TABLET
     Route: 048
  12. SODIUM PICOSULFATE [Concomitant]
     Active Substance: SODIUM PICOSULFATE
     Dosage: 5 MG, 0-1-0-0, DROPS
     Route: 048
  13. CYANOCOBALAMIN [Concomitant]
     Active Substance: CYANOCOBALAMIN
     Dosage: 1 MG, 0-1-0-0, TABLET
     Route: 048
  14. CHOLECALCIFEROL [Concomitant]
     Active Substance: CHOLECALCIFEROL
     Dosage: 1000 IE, 2-0-0-0, TABLET
     Route: 048
  15. LACTULOSE [Concomitant]
     Active Substance: LACTULOSE
     Dosage: 6.670 G, 0-1-0-0, SYRUP
     Route: 048

REACTIONS (7)
  - General physical health deterioration [Unknown]
  - Muscular weakness [Unknown]
  - Weight decreased [Unknown]
  - Dyspnoea [Unknown]
  - Nausea [Unknown]
  - Anaemia [Unknown]
  - Constipation [Unknown]
